FAERS Safety Report 8200059-X (Version None)
Quarter: 2012Q1

REPORT INFORMATION
  Report Type: 
  Country: None (occurrence: None)
  Receive Date: 20120312
  Receipt Date: 20120224
  Transmission Date: 20120608
  Serious: Yes (Other)
  Sender: FDA-Public Use
  Company Number: FR-ALVOGEN-2012AL000012

PATIENT
  Age: 70 Year
  Sex: Female

DRUGS (1)
  1. FURADANTIN [Suspect]
     Indication: URINARY TRACT INFECTION
     Route: 048
     Dates: start: 20111215, end: 20111223

REACTIONS (2)
  - VARICOSE VEIN [None]
  - PURPURA [None]
